FAERS Safety Report 8080598-5 (Version None)
Quarter: 2012Q1

REPORT INFORMATION
  Report Type: 
  Country: None (occurrence: None)
  Receive Date: 20120130
  Receipt Date: 20120123
  Transmission Date: 20120608
  Serious: Yes (Hospitalization, Other)
  Sender: FDA-Public Use
  Company Number: FR-ROXANE LABORATORIES, INC.-2010-RO-00794RO

PATIENT
  Age: 44 Year
  Sex: Male

DRUGS (13)
  1. ETHAMBUTHOL [Suspect]
     Indication: PNEUMONIA BACTERIAL
  2. PREDNISONE TAB [Suspect]
     Indication: IMMUNOSUPPRESSANT DRUG THERAPY
     Dosage: 10 MG
  3. TACROLIMUS [Suspect]
     Indication: IMMUNOSUPPRESSANT DRUG THERAPY
     Dosage: 6 MG
  4. RIFABUTIN [Suspect]
     Indication: ANTIBIOTIC THERAPY
  5. RIFAMPIN [Suspect]
     Indication: ANTIBIOTIC THERAPY
  6. MYCOPHENOLATE MOFETIL [Suspect]
     Indication: IMMUNOSUPPRESSANT DRUG THERAPY
     Dosage: 1500 MG
  7. CLARITHROMYCIN [Suspect]
     Indication: PNEUMONIA BACTERIAL
  8. RIFABUTIN [Suspect]
     Indication: PNEUMONIA BACTERIAL
  9. ISONIAZID [Suspect]
     Indication: ANTIBIOTIC THERAPY
  10. MOXIFLOXACIN [Suspect]
     Indication: PNEUMONIA BACTERIAL
     Dosage: 400 MG
  11. CLARITHROMYCIN [Suspect]
     Indication: ANTIBIOTIC THERAPY
     Dosage: 1000 MG
  12. ETHAMBUTHOL [Suspect]
     Indication: ANTIBIOTIC THERAPY
  13. CYCLOSPORINE [Suspect]
     Indication: IMMUNOSUPPRESSANT DRUG THERAPY

REACTIONS (7)
  - INTESTINAL OBSTRUCTION [None]
  - COLITIS ULCERATIVE [None]
  - MALABSORPTION [None]
  - DECREASED APPETITE [None]
  - GRANULOMA [None]
  - PNEUMONIA BACTERIAL [None]
  - DRUG INEFFECTIVE [None]
